FAERS Safety Report 6198012-3 (Version None)
Quarter: 2009Q2

REPORT INFORMATION
  Report Type: 
  Country: None (occurrence: None)
  Receive Date: 20090521
  Receipt Date: 20090514
  Transmission Date: 20091009
  Serious: Yes (Hospitalization, Other)
  Sender: FDA-Public Use
  Company Number: CA-ELI_LILLY_AND_COMPANY-CA200903002417

PATIENT
  Age: 88 Year
  Sex: Female

DRUGS (9)
  1. FORTEO [Suspect]
     Indication: OSTEOPOROSIS
     Dosage: 20 UG, UNK
     Dates: start: 20081002, end: 20090303
  2. FORTEO [Suspect]
     Dosage: 20 UG, DAILY (1/D)
     Dates: start: 20090307
  3. ASPIRIN [Concomitant]
     Dosage: 81 MG, UNK
  4. DIGOXIN [Concomitant]
     Dosage: 0.062 MG, DAILY (1/D)
  5. FUROSEMIDE [Concomitant]
     Dosage: 40 MG, DAILY (1/D)
  6. FUROSEMIDE [Concomitant]
     Dosage: 60 MG, UNK
     Dates: start: 20090314
  7. NITROGLYCERIN [Concomitant]
     Dosage: 0.4 MG, DAILY (1/D)
  8. FLUTICASONE [Concomitant]
  9. TIAZAC                             /00489702/ [Concomitant]

REACTIONS (5)
  - ACUTE PULMONARY OEDEMA [None]
  - ATRIAL FIBRILLATION [None]
  - CARDIAC FAILURE CONGESTIVE [None]
  - NAUSEA [None]
  - URINARY TRACT INFECTION [None]
